FAERS Safety Report 6594565-1 (Version None)
Quarter: 2010Q1

REPORT INFORMATION
  Report Type: 
  Country: None (occurrence: None)
  Receive Date: 20100222
  Receipt Date: 20100216
  Transmission Date: 20100710
  Serious: Yes (Death)
  Sender: FDA-Public Use
  Company Number: US-CELGENEUS-163-21880-09111208

PATIENT
  Sex: Female

DRUGS (2)
  1. REVLIMID [Suspect]
     Indication: MYELODYSPLASTIC SYNDROME
     Route: 048
     Dates: start: 20090901, end: 20091106
  2. REVLIMID [Suspect]
     Route: 048
     Dates: start: 20090729

REACTIONS (2)
  - ACUTE HEPATIC FAILURE [None]
  - HEPATIC CIRRHOSIS [None]
